FAERS Safety Report 23556685 (Version 1)
Quarter: 2024Q1

REPORT INFORMATION
  Report Type: Spontaneous
  Country: NL (occurrence: NL)
  Receive Date: 20240223
  Receipt Date: 20240223
  Transmission Date: 20240409
  Serious: Yes (Other)
  Sender: FDA-Public Use
  Company Number: None

PATIENT

DRUGS (2)
  1. FLUTICASONE PROPIONATE\SALMETEROL XINAFOATE [Suspect]
     Active Substance: FLUTICASONE PROPIONATE\SALMETEROL XINAFOATE
     Indication: Asthma
     Dosage: UNK (AEROSOL, 25/250 ?G/DOSIS)
     Route: 065
     Dates: start: 20240115
  2. VENTOLIN [Concomitant]
     Active Substance: ALBUTEROL SULFATE
     Indication: Product used for unknown indication
     Dosage: UNK (250)
     Route: 065

REACTIONS (4)
  - Arthralgia [Recovering/Resolving]
  - Oral pain [Recovering/Resolving]
  - Urticaria [Recovering/Resolving]
  - Myalgia [Recovering/Resolving]
